FAERS Safety Report 16724468 (Version 1)
Quarter: 2019Q3

REPORT INFORMATION
  Report Type: Spontaneous
  Country: US (occurrence: US)
  Receive Date: 20190821
  Receipt Date: 20190821
  Transmission Date: 20191005
  Serious: Yes (Death, Hospitalization, Other)
  Sender: FDA-Public Use
  Company Number: US-NVP-000019

PATIENT
  Age: 57 Year

DRUGS (5)
  1. LAMIVUDINE,ABACAVIR,DOLUTEGRAVIR [Concomitant]
     Active Substance: ABACAVIR SULFATE\DOLUTEGRAVIR SODIUM\LAMIVUDINE
     Indication: PULMONARY ARTERIAL HYPERTENSION
     Route: 065
  2. SILDENAFIL. [Suspect]
     Active Substance: SILDENAFIL
     Indication: PULMONARY ARTERIAL HYPERTENSION
     Route: 065
  3. EMTRICITABINE,TENOFOVIR,ELVITEGRAVIR,COBICISTAT [Interacting]
     Active Substance: COBICISTAT\ELVITEGRAVIR\EMTRICITABINE\TENOFOVIR
     Indication: PRODUCT USED FOR UNKNOWN INDICATION
     Route: 065
  4. SILDENAFIL. [Interacting]
     Active Substance: SILDENAFIL
     Indication: PULMONARY ARTERIAL HYPERTENSION
     Route: 065
  5. SILDENAFIL. [Interacting]
     Active Substance: SILDENAFIL
     Indication: PULMONARY ARTERIAL HYPERTENSION
     Route: 065

REACTIONS (5)
  - Condition aggravated [Unknown]
  - Hypotension [Unknown]
  - Pulmonary arterial hypertension [Unknown]
  - Acute respiratory failure [Fatal]
  - Drug interaction [Unknown]
